FAERS Safety Report 6305577-7 (Version None)
Quarter: 2009Q3

REPORT INFORMATION
  Report Type: 
  Country: None (occurrence: None)
  Receive Date: 20090807
  Receipt Date: 20090724
  Transmission Date: 20100115
  Serious: Yes (Hospitalization)
  Sender: FDA-Public Use
  Company Number: MPS1-1000240

PATIENT
  Age: 16 Month
  Sex: Female
  Weight: 9.6 kg

DRUGS (4)
  1. ALDURAZYME [Suspect]
     Indication: MUCOPOLYSACCHARIDOSIS
     Dosage: 100 U/KG, 1X/W, INTRAVENOUS
     Route: 042
     Dates: start: 20090506
  2. ALDURAZYME [Suspect]
  3. IBUPROFEN [Concomitant]
  4. CHLORPHENIRAMINE MALEATE [Concomitant]

REACTIONS (5)
  - DECREASED APPETITE [None]
  - DIARRHOEA [None]
  - INFUSION RELATED REACTION [None]
  - VIRAL INFECTION [None]
  - VOMITING [None]
